FAERS Safety Report 7329646-8 (Version None)
Quarter: 2011Q1

REPORT INFORMATION
  Report Type: 
  Country: None (occurrence: None)
  Receive Date: 20110303
  Receipt Date: 20110222
  Transmission Date: 20110831
  Serious: Yes (Other)
  Sender: FDA-Public Use
  Company Number: US-TEVA-268098USA

PATIENT
  Age: 86 Year
  Sex: Male
  Weight: 58.975 kg

DRUGS (8)
  1. LEVOTHYROXINE SODIUM [Concomitant]
     Indication: THYROID DISORDER
  2. POTASSIUM [Concomitant]
  3. SIMVASTATIN [Suspect]
     Indication: BLOOD CHOLESTEROL INCREASED
     Dates: start: 20110101
  4. PRAVASTATIN [Suspect]
     Indication: BLOOD CHOLESTEROL INCREASED
  5. TRAZODONE [Concomitant]
  6. CARVEDILOL [Concomitant]
  7. ATORVASTATIN CALCIUM [Suspect]
     Indication: BLOOD CHOLESTEROL INCREASED
     Route: 048
     Dates: start: 20090410, end: 20110101
  8. SENNA ALEXANDRINA [Concomitant]
     Indication: LAXATIVE SUPPORTIVE CARE

REACTIONS (1)
  - CARDIAC DISORDER [None]
